FAERS Safety Report 17437367 (Version 1)
Quarter: 2020Q1

REPORT INFORMATION
  Report Type: Spontaneous
  Country: FR (occurrence: FR)
  Receive Date: 20200219
  Receipt Date: 20200219
  Transmission Date: 20200409
  Serious: Yes (Other)
  Sender: FDA-Public Use
  Company Number: FR-BAUSCH-BL-2020-004630

PATIENT
  Age: 55 Year
  Sex: Male
  Weight: 137 kg

DRUGS (8)
  1. GLICLAZIDE [Concomitant]
     Active Substance: GLICLAZIDE
     Indication: TYPE 2 DIABETES MELLITUS
     Route: 048
  2. ACICLOVIR [Concomitant]
     Active Substance: ACYCLOVIR
     Indication: MENINGITIS
     Route: 041
     Dates: start: 20191117, end: 20191118
  3. CLOXACILLINE [Concomitant]
     Active Substance: CLOXACILLIN
     Indication: ENDOCARDITIS
     Route: 041
     Dates: start: 20191118, end: 20191127
  4. AMOXICILLINE [Concomitant]
     Active Substance: AMOXICILLIN
     Indication: MENINGITIS
     Route: 048
     Dates: start: 20191117, end: 20191118
  5. CLAIRYG [Concomitant]
     Active Substance: HUMAN IMMUNOGLOBULIN G
     Indication: PRODUCT USED FOR UNKNOWN INDICATION
     Route: 041
     Dates: start: 20191120, end: 20191120
  6. CEFOTAXIME BASE [Concomitant]
     Active Substance: CEFOTAXIME SODIUM
     Indication: MENINGITIS
     Route: 041
     Dates: start: 20191117, end: 20191118
  7. GENTAMICINE [Suspect]
     Active Substance: GENTAMICIN
     Indication: ENDOCARDITIS
     Route: 065
     Dates: start: 20191121, end: 20191122
  8. XARELTO [Concomitant]
     Active Substance: RIVAROXABAN
     Indication: DEEP VEIN THROMBOSIS
     Route: 048
     Dates: start: 2017

REACTIONS (1)
  - Acute kidney injury [Unknown]

NARRATIVE: CASE EVENT DATE: 20191124
